FAERS Safety Report 6517818-1 (Version None)
Quarter: 2009Q4

REPORT INFORMATION
  Report Type: 
  Country: None (occurrence: None)
  Receive Date: 20091218
  Receipt Date: 20091215
  Transmission Date: 20100525
  Serious: Yes (Other)
  Sender: FDA-Public Use
  Company Number: TPA2009A04062

PATIENT
  Sex: Female

DRUGS (4)
  1. ACTOS [Suspect]
     Indication: DIABETES MELLITUS
     Dosage: 45 MG, 1 IN 1 D, ORAL
     Route: 048
  2. PREDNISONE [Suspect]
     Dosage: 20 MG, 5 TABS QD FOR 5 DAYS, ORAL
     Route: 048
     Dates: start: 20091001, end: 20091001
  3. RITUXAN [Concomitant]
  4. GLIMEPRIDE (GLIMEPIRIDE) [Concomitant]

REACTIONS (2)
  - BLOOD GLUCOSE INCREASED [None]
  - LYMPHOMA [None]
